FAERS Safety Report 19125503 (Version 1)
Quarter: 2021Q2

REPORT INFORMATION
  Report Type: Spontaneous
  Country: QA (occurrence: QA)
  Receive Date: 20210413
  Receipt Date: 20210413
  Transmission Date: 20210717
  Serious: Yes (Hospitalization, Other)
  Sender: FDA-Public Use
  Company Number: QA-009507513-2104QAT001260

PATIENT
  Age: 53 Year
  Sex: Female

DRUGS (1)
  1. TEMOZOLOMIDE. [Suspect]
     Active Substance: TEMOZOLOMIDE
     Indication: ANAPLASTIC ASTROCYTOMA
     Dosage: UNK

REACTIONS (5)
  - Cellulitis [Not Recovered/Not Resolved]
  - Pulmonary embolism [Unknown]
  - Fungal skin infection [Not Recovered/Not Resolved]
  - Off label use [Unknown]
  - Aspergillus infection [Not Recovered/Not Resolved]
